FAERS Safety Report 8139292-4 (Version None)
Quarter: 2012Q1

REPORT INFORMATION
  Report Type: 
  Country: None (occurrence: None)
  Receive Date: 20120215
  Receipt Date: 20111212
  Transmission Date: 20120608
  Serious: No
  Sender: FDA-Public Use
  Company Number: US-MYLANLABS-2011S1025655

PATIENT
  Age: 45 Year
  Sex: Female

DRUGS (6)
  1. WELLBUTRIN [Concomitant]
     Indication: ATTENTION DEFICIT/HYPERACTIVITY DISORDER
     Route: 048
     Dates: start: 20060101
  2. ALPRAZOLAM [Suspect]
     Route: 048
     Dates: start: 20111115
  3. ALPRAZOLAM [Suspect]
     Indication: ANXIETY
     Route: 048
     Dates: start: 20111111
  4. ALPRAZOLAM [Suspect]
     Indication: ANXIETY
     Route: 048
     Dates: end: 20111111
  5. ALPRAZOLAM [Suspect]
     Route: 048
     Dates: start: 20111112, end: 20111114
  6. ALPRAZOLAM [Suspect]
     Route: 048
     Dates: start: 20111111

REACTIONS (4)
  - SOMNOLENCE [None]
  - DISTURBANCE IN ATTENTION [None]
  - INCORRECT DOSE ADMINISTERED [None]
  - WITHDRAWAL SYNDROME [None]
